FAERS Safety Report 12813632 (Version 1)
Quarter: 2016Q4

REPORT INFORMATION
  Report Type: Spontaneous
  Country: US (occurrence: US)
  Receive Date: 20161005
  Receipt Date: 20161005
  Transmission Date: 20170207
  Serious: No
  Sender: FDA-Public Use
  Company Number: US-SA-2015SA160531

PATIENT
  Sex: Female

DRUGS (2)
  1. COLESTYRAMINE [Concomitant]
     Active Substance: CHOLESTYRAMINE
  2. ARAVA [Suspect]
     Active Substance: LEFLUNOMIDE
     Route: 065

REACTIONS (3)
  - Activities of daily living impaired [Unknown]
  - Malaise [Unknown]
  - Burning sensation [Unknown]
